FAERS Safety Report 6448919-4 (Version None)
Quarter: 2009Q4

REPORT INFORMATION
  Report Type: 
  Country: None (occurrence: None)
  Receive Date: 20091119
  Receipt Date: 20091119
  Transmission Date: 20100525
  Serious: Yes (Life-Threatening, Other)
  Sender: FDA-Public Use
  Company Number: None

PATIENT
  Age: 19 Year
  Sex: Female
  Weight: 61.2356 kg

DRUGS (1)
  1. D-AMPHETAMINE SALTS COMBO 10MG COREPHARMA [Suspect]
     Indication: ATTENTION DEFICIT/HYPERACTIVITY DISORDER
     Dosage: 10MG 2/DAY PO
     Route: 048
     Dates: start: 20091115, end: 20091118

REACTIONS (5)
  - ABDOMINAL PAIN UPPER [None]
  - ANXIETY [None]
  - FEELING JITTERY [None]
  - HEADACHE [None]
  - PRODUCT SUBSTITUTION ISSUE [None]
